FAERS Safety Report 9850903 (Version 3)
Quarter: 2014Q1

REPORT INFORMATION
  Report Type: Report from Study
  Country: FR (occurrence: FR)
  Receive Date: 20140128
  Receipt Date: 20140220
  Transmission Date: 20141002
  Serious: Yes (Hospitalization)
  Sender: FDA-Public Use
  Company Number: FR-BAYER-2014-000617

PATIENT
  Age: 76 Year
  Sex: Male
  Weight: 67 kg

DRUGS (11)
  1. REGORAFENIB [Suspect]
     Dosage: DAILY DOSE 160 MG
     Route: 048
     Dates: start: 20131120, end: 20131211
  2. REGORAFENIB [Suspect]
     Dosage: DAILY DOSE 160 MG
     Dates: start: 20131219, end: 20131226
  3. REGORAFENIB [Suspect]
     Dosage: 3 DF, QD (3 PILLS/DAY)
     Dates: start: 20140116
  4. SOTALEX [Concomitant]
     Indication: MYOCARDIAL ISCHAEMIA
     Dosage: DAILY DOSE 160 MG
     Route: 048
  5. FUROSEMID [Concomitant]
     Indication: HYPERTENSION
     Dosage: DAILY DOSE 20 MG
     Route: 048
  6. TAHOR [Concomitant]
     Indication: DYSLIPIDAEMIA
     Dosage: DAILY DOSE 40 MG
     Route: 048
  7. ALDACTONE [SPIRONOLACTONE] [Concomitant]
     Indication: HYPERTENSION
     Dosage: DAILY DOSE 25 MG
  8. TRIATEC [Concomitant]
     Indication: HYPERTENSION
     Dosage: DAILY DOSE 2.5 MG
  9. KARDEGIC [Concomitant]
     Indication: THROMBOSIS PROPHYLAXIS
     Dosage: DAILY DOSE 160 MG
     Route: 048
  10. EZETROL [Concomitant]
     Indication: DYSLIPIDAEMIA
     Dosage: DAILY DOSE 100 MG
     Route: 048
  11. ALLOPURINOL [Concomitant]
     Indication: GOUT
     Dosage: DAILY DOSE 100 MG
     Route: 048

REACTIONS (2)
  - Dyspnoea [Recovered/Resolved]
  - Dyspnoea [Not Recovered/Not Resolved]
